FAERS Safety Report 10450216 (Version 4)
Quarter: 2017Q4

REPORT INFORMATION
  Report Type: Spontaneous
  Country: GB (occurrence: GB)
  Receive Date: 20140912
  Receipt Date: 20171225
  Transmission Date: 20180320
  Serious: Yes (Other)
  Sender: FDA-Public Use
  Company Number: GB-TEVA-507199ISR

PATIENT
  Sex: Male

DRUGS (5)
  1. METFORMIN [Interacting]
     Active Substance: METFORMIN HYDROCHLORIDE
     Dosage: 2000 MILLIGRAM DAILY;
  2. LEVOTHYROXINE. [Interacting]
     Active Substance: LEVOTHYROXINE
     Dosage: 150 MICROGRAM DAILY; 25 MICROGRAM, 6 TIMES DAILY (150 MICROGRAM DAILY)
     Route: 048
  3. LEVOTHYROXINE. [Interacting]
     Active Substance: LEVOTHYROXINE
     Dosage: 200 MICROGRAM DAILY; 25 MICROGRAM, 8 TIMES DAILY (200 MICROGRAM DAILY)
     Route: 048
     Dates: start: 201409
  4. CLOZAPINE. [Interacting]
     Active Substance: CLOZAPINE
     Dosage: 100MG WITH BREAKFAST, 250MG AT BEDTIME
  5. GLICLAZIDE [Suspect]
     Active Substance: GLICLAZIDE
     Dosage: 160 MILLIGRAM DAILY;
     Route: 065

REACTIONS (2)
  - Blood glucose increased [Unknown]
  - Drug interaction [Unknown]
